FAERS Safety Report 10183943 (Version 15)
Quarter: 2015Q2

REPORT INFORMATION
  Report Type: Spontaneous
  Country: US (occurrence: US)
  Receive Date: 20140520
  Receipt Date: 20150423
  Transmission Date: 20150821
  Serious: Yes (Death, Hospitalization, Other)
  Sender: FDA-Public Use
  Company Number: US-GLAXOSMITHKLINE-A1035470A

PATIENT
  Sex: Female

DRUGS (13)
  1. FLOLAN [Suspect]
     Active Substance: EPOPROSTENOL SODIUM
     Dosage: UNK
     Dates: start: 20130710
  2. REVATIO [Concomitant]
     Active Substance: SILDENAFIL CITRATE
  3. WARFARIN SODIUM. [Concomitant]
     Active Substance: WARFARIN SODIUM
  4. FLOLAN [Suspect]
     Active Substance: EPOPROSTENOL SODIUM
     Dosage: UNK
     Dates: start: 20130710
  5. FLOLAN [Suspect]
     Active Substance: EPOPROSTENOL SODIUM
     Dosage: UNK
     Dates: start: 20130710
  6. FLOLAN [Suspect]
     Active Substance: EPOPROSTENOL SODIUM
     Dosage: UNK
     Dates: start: 20130710
  7. FLOLAN [Suspect]
     Active Substance: EPOPROSTENOL SODIUM
     Dosage: 30 NG/KG/MIN CONTINUOUSLY
  8. COUMADIN [Concomitant]
     Active Substance: WARFARIN SODIUM
  9. FLOLAN [Suspect]
     Active Substance: EPOPROSTENOL SODIUM
     Dosage: UNK
     Dates: start: 20130710
  10. TRACLEER [Concomitant]
     Active Substance: BOSENTAN\BOSENTAN MONOHYDRATE
  11. FLOLAN [Suspect]
     Active Substance: EPOPROSTENOL SODIUM
     Indication: PULMONARY ARTERIAL HYPERTENSION
     Dosage: DOSE: 8 NG/KG/MIN CONTINUOUSCONCENTRATION: 15000 NG/MLVIAL STRENGTH: 1.5 MGDOSE:17 NG/KG/MIN, C[...]
     Route: 042
     Dates: start: 20130710
  12. FLOLAN [Suspect]
     Active Substance: EPOPROSTENOL SODIUM
     Dosage: 20 NG/KG/MIN, CO
     Route: 042
     Dates: start: 20130710
  13. SILDENAFIL. [Concomitant]
     Active Substance: SILDENAFIL

REACTIONS (16)
  - Dyspnoea [Unknown]
  - Pulmonary arterial hypertension [Unknown]
  - Pneumonia [Unknown]
  - Device leakage [Unknown]
  - Catheter site bruise [Unknown]
  - Weight decreased [Unknown]
  - Ill-defined disorder [Unknown]
  - Death [Fatal]
  - Pulmonary oedema [Recovered/Resolved]
  - Hospitalisation [Unknown]
  - Fluid imbalance [Unknown]
  - Catheter site pain [Unknown]
  - Oedema [Unknown]
  - Abdominal pain [Unknown]
  - Drug administration error [Unknown]
  - Asthenia [Unknown]
